FAERS Safety Report 10160257 (Version 1)
Quarter: 2014Q2

REPORT INFORMATION
  Report Type: Spontaneous
  Country: JP (occurrence: JP)
  Receive Date: 20140508
  Receipt Date: 20140508
  Transmission Date: 20141212
  Serious: Yes (Hospitalization)
  Sender: FDA-Public Use
  Company Number: JP-GLAXOSMITHKLINE-B0991343A

PATIENT
  Age: 49 Year
  Sex: Female

DRUGS (13)
  1. CIGANON CLEAR1 [Suspect]
     Indication: EX-TOBACCO USER
     Route: 062
  2. TALION [Concomitant]
     Route: 048
  3. CEPHARANTHINE [Concomitant]
     Route: 048
  4. GLYCYRON [Concomitant]
     Route: 048
  5. MEILAX [Concomitant]
     Route: 048
  6. JZOLOFT [Concomitant]
     Route: 048
  7. CEROCRAL [Concomitant]
     Route: 048
  8. CRESTOR [Concomitant]
     Route: 048
  9. LIPIDIL [Concomitant]
     Route: 048
  10. PZC [Concomitant]
     Route: 048
  11. MOHRUS TAPE [Concomitant]
     Route: 062
  12. TOLEDOMIN [Concomitant]
     Route: 048
  13. RIVOTRIL [Concomitant]
     Route: 048

REACTIONS (2)
  - Eczema [Not Recovered/Not Resolved]
  - Pruritus [Not Recovered/Not Resolved]
